FAERS Safety Report 10486726 (Version 1)
Quarter: 2014Q3

REPORT INFORMATION
  Report Type: Spontaneous
  Country: US (occurrence: None)
  Receive Date: 20140930
  Receipt Date: 20140930
  Transmission Date: 20150326
  Serious: Yes (Disabling)
  Sender: FDA-Public Use
  Company Number: None

PATIENT
  Age: 46 Year
  Sex: Female
  Weight: 65.77 kg

DRUGS (1)
  1. SUMATRIPTAN [Suspect]
     Active Substance: SUMATRIPTAN
     Indication: MIGRAINE
     Route: 030
     Dates: start: 20140910, end: 20140911

REACTIONS (6)
  - Feeling abnormal [None]
  - Dizziness [None]
  - Colitis ischaemic [None]
  - Dehydration [None]
  - Loss of consciousness [None]
  - Abdominal pain upper [None]

NARRATIVE: CASE EVENT DATE: 20140910
